FAERS Safety Report 24458790 (Version 1)
Quarter: 2024Q4

REPORT INFORMATION
  Report Type: Spontaneous
  Country: US (occurrence: None)
  Receive Date: 20241017
  Receipt Date: 20241017
  Transmission Date: 20250114
  Serious: Yes (Hospitalization)
  Sender: Public
  Company Number: None

PATIENT
  Age: 69 Year
  Sex: Male
  Weight: 114 kg

DRUGS (1)
  1. CARBOPLATIN [Suspect]
     Active Substance: CARBOPLATIN
     Indication: Neoplasm malignant
     Dosage: OTHER FREQUENCY : OTHER;?
     Route: 042
     Dates: start: 20240409, end: 20240409

REACTIONS (8)
  - Vision blurred [None]
  - Angina pectoris [None]
  - Hyperhidrosis [None]
  - Hypotension [None]
  - Diplopia [None]
  - Dysgeusia [None]
  - Pleural effusion [None]
  - Loss of consciousness [None]

NARRATIVE: CASE EVENT DATE: 20240409
